FAERS Safety Report 9767327 (Version 1)
Quarter: 2013Q4

REPORT INFORMATION
  Report Type: Spontaneous
  Country: US (occurrence: None)
  Receive Date: 20131216
  Receipt Date: 20131216
  Transmission Date: 20140711
  Serious: Yes (Hospitalization)
  Sender: FDA-Public Use
  Company Number: None

PATIENT
  Age: 76 Year
  Sex: Male
  Weight: 91 kg

DRUGS (20)
  1. BEVACIZUMAB [Suspect]
     Indication: LUNG NEOPLASM MALIGNANT
     Route: 042
     Dates: start: 20130507, end: 20130618
  2. ASPIRIN [Concomitant]
  3. BIOTIN [Concomitant]
  4. CALTRATE [Concomitant]
  5. CENTRUM SILVER [Concomitant]
  6. GINGER [Concomitant]
  7. IBUPROFEN [Concomitant]
  8. MIRALAX [Concomitant]
  9. OCUVITE [Concomitant]
  10. OXYCODONE [Concomitant]
  11. SERTRALINE [Concomitant]
  12. TYLENOL [Concomitant]
  13. VITAMIN C [Concomitant]
  14. VITAMIN D [Concomitant]
  15. VITAMIN B12 [Concomitant]
  16. DEXAMETHASONE [Concomitant]
  17. STOOL SOFTNER [Concomitant]
  18. GABAPENTIN [Concomitant]
  19. CARBOPLATIN AUC [Concomitant]
  20. PEMETREXED [Concomitant]

REACTIONS (3)
  - Pulmonary embolism [None]
  - Deep vein thrombosis [None]
  - Thrombocytopenia [None]
